FAERS Safety Report 7488326-9 (Version None)
Quarter: 2011Q2

REPORT INFORMATION
  Report Type: 
  Country: None (occurrence: None)
  Receive Date: 20110518
  Receipt Date: 20110505
  Transmission Date: 20111010
  Serious: Yes (Hospitalization)
  Sender: FDA-Public Use
  Company Number: NO-ELI_LILLY_AND_COMPANY-NO201105002407

PATIENT
  Age: 70 Year
  Sex: Male

DRUGS (6)
  1. SIMVASTATIN [Concomitant]
     Indication: HYPERCHOLESTEROLAEMIA
     Dosage: 40 MG, QD
     Route: 048
  2. VALPROIC ACID [Concomitant]
     Indication: BIPOLAR DISORDER
     Dosage: 1.8 MG, QD
     Route: 048
  3. ZANIDIP [Concomitant]
     Indication: HYPERTENSION
     Dosage: 20 MG, QD
     Route: 048
  4. ATACAND [Concomitant]
     Indication: HYPERTENSION
     Dosage: 32 MG, QD
     Route: 048
  5. ZYPREXA [Suspect]
     Indication: BIPOLAR DISORDER
     Dosage: 2.5 MG, QD
     Route: 048
     Dates: start: 20100501, end: 20110331
  6. ESCITALOPRAM [Concomitant]
     Indication: BIPOLAR DISORDER
     Dosage: 5 MG, QD
     Route: 048
     Dates: start: 20101101

REACTIONS (1)
  - DEEP VEIN THROMBOSIS [None]
